FAERS Safety Report 22173639 (Version 1)
Quarter: 2023Q2

REPORT INFORMATION
  Report Type: Spontaneous
  Country: CA (occurrence: CA)
  Receive Date: 20230404
  Receipt Date: 20230404
  Transmission Date: 20230722
  Serious: Yes (Hospitalization, Other)
  Sender: FDA-Public Use
  Company Number: CA-ORGANON-O2304CAN000134

PATIENT
  Age: 86 Year
  Sex: Female

DRUGS (20)
  1. NASONEX [Suspect]
     Active Substance: MOMETASONE FUROATE
     Indication: Product used for unknown indication
     Dosage: 2 DOSAGE FORM, 2 EVERY 1 DAYS
     Route: 065
  2. NASONEX [Suspect]
     Active Substance: MOMETASONE FUROATE
     Dosage: 2 DOSAGE FORM, 1 EVERY 1 DAYS (DOSAGE FORM: SPRAY, METERED DOSE)
     Route: 065
  3. NASONEX [Suspect]
     Active Substance: MOMETASONE FUROATE
     Dosage: UNK, (1 EVERY 1 DAY), (DOSAGE FORM: SPRAY, METERED DOSE)
     Route: 065
  4. NASONEX [Suspect]
     Active Substance: MOMETASONE FUROATE
     Dosage: UNK, (2 EVERY 1 DAY)
     Route: 065
  5. ADVAIR HFA [Suspect]
     Active Substance: FLUTICASONE PROPIONATE\SALMETEROL XINAFOATE
     Indication: Product used for unknown indication
     Dosage: 2 DOSAGE FORM, 2 EVERY 1 DAYS; (DOSAGE FORM NOT SPECIFIED)
  6. ADVAIR HFA [Suspect]
     Active Substance: FLUTICASONE PROPIONATE\SALMETEROL XINAFOATE
     Dosage: UNK, 2 EVERY 1 DAYS; (DOSAGE FORM NOT SPECIFIED)
  7. CALCIUM [Suspect]
     Active Substance: CALCIUM
     Indication: Product used for unknown indication
     Dosage: 500 MILLIGRAM, 2 EVERY 1 DAYS; (DOSAGE FORM NOT SPECIFIED)
     Route: 065
  8. CANDESARTAN [Suspect]
     Active Substance: CANDESARTAN
     Indication: Product used for unknown indication
     Dosage: 8 MILLIGRAM, 1 EVERY 1 DAYS
     Route: 048
  9. DEXILANT [Suspect]
     Active Substance: DEXLANSOPRAZOLE
     Indication: Product used for unknown indication
     Dosage: 30 MILLIGRAM, 1 EVERY DAYS
     Route: 065
  10. FERROUS SULFATE ANHYDROUS [Suspect]
     Active Substance: FERROUS SULFATE ANHYDROUS
     Indication: Product used for unknown indication
     Dosage: 300 MILLIGRAM, 1 EVERY DAYS; (DOSAGE FORM NOT SPECIFIED)
     Route: 065
  11. K-DUR [Suspect]
     Active Substance: POTASSIUM CHLORIDE
     Indication: Product used for unknown indication
     Dosage: 20 MILLIEQUIVALENTS, 1 EVERY DAYS
     Route: 065
  12. LACTULOSE [Suspect]
     Active Substance: LACTULOSE
     Indication: Product used for unknown indication
     Dosage: UNK
     Route: 065
  13. LASIX [Suspect]
     Active Substance: FUROSEMIDE
     Indication: Product used for unknown indication
     Dosage: 20 MILLIGRAM, 1 EVERY 1 DAYS; (DOSAGE FORM NOT SPECIFIED)
     Route: 065
  14. MEPOLIZUMAB [Suspect]
     Active Substance: MEPOLIZUMAB
     Indication: Asthma
     Dosage: 100 MILLIGRAM, 1 EVERY 1 MONTHS
     Route: 065
  15. METOCLOPRAMIDE HYDROCHLORIDE [Suspect]
     Active Substance: METOCLOPRAMIDE HYDROCHLORIDE
     Indication: Product used for unknown indication
     Dosage: UNK, DOSAGE FORM: NOT SPECIFIED
     Route: 065
  16. QUETIAPINE FUMARATE [Suspect]
     Active Substance: QUETIAPINE FUMARATE
     Indication: Product used for unknown indication
     Dosage: 12.5 MILLIGRAM
     Route: 048
  17. TYLENOL [Suspect]
     Active Substance: ACETAMINOPHEN
     Indication: Product used for unknown indication
     Dosage: UNK (DOSAGE FORM: NOT SPECIFIED)
     Route: 065
  18. UNIPHYL [Suspect]
     Active Substance: THEOPHYLLINE ANHYDROUS
     Indication: Product used for unknown indication
     Dosage: 400 MILLIGRAM, 1 EVERY 1 DAYS
     Route: 065
  19. VENTOLIN [Suspect]
     Active Substance: ALBUTEROL SULFATE
     Indication: Product used for unknown indication
     Dosage: 2 DOSAGE FORM, 1 EVERY 1 DAYS; (DOSAGE FORM: NOT SPECIFIED)
  20. VENTOLIN [Suspect]
     Active Substance: ALBUTEROL SULFATE
     Dosage: UNK, 1 EVERY 1 DAYS; (DOSAGE FORM: NOT SPECIFIED)

REACTIONS (15)
  - Accident [Recovered/Resolved]
  - Asthma [Recovered/Resolved]
  - Cough [Recovered/Resolved]
  - Dyspnoea [Recovered/Resolved]
  - Fall [Recovered/Resolved]
  - Flail chest [Recovered/Resolved]
  - Loss of personal independence in daily activities [Recovered/Resolved]
  - Lower limb fracture [Recovered/Resolved]
  - Lung perforation [Recovered/Resolved]
  - Pneumonia [Recovered/Resolved]
  - Rhinorrhoea [Recovered/Resolved]
  - Rib fracture [Recovered/Resolved]
  - Sputum discoloured [Recovered/Resolved]
  - Thoracic operation [Recovered/Resolved]
  - Wheezing [Recovered/Resolved]
